FAERS Safety Report 12575903 (Version 1)
Quarter: 2016Q3

REPORT INFORMATION
  Report Type: Spontaneous
  Country: US (occurrence: US)
  Receive Date: 20160720
  Receipt Date: 20160720
  Transmission Date: 20161109
  Serious: Yes (Other)
  Sender: FDA-Public Use
  Company Number: US-AMGEN-USASP2016082684

PATIENT
  Age: 87 Year
  Sex: Female
  Weight: 73.47 kg

DRUGS (7)
  1. LISINOPRIL. [Concomitant]
     Active Substance: LISINOPRIL
     Dosage: 10 MG, UNK
  2. REPATHA [Suspect]
     Active Substance: EVOLOCUMAB
     Indication: HYPERCHOLESTEROLAEMIA
     Dosage: 140 MG, Q2WK
     Route: 058
     Dates: start: 20160115, end: 201606
  3. LEVOTHYROXIN [Concomitant]
     Active Substance: LEVOTHYROXINE
     Dosage: 75 MUG, UNK
  4. METOPROLOL TARTRATO [Concomitant]
     Dosage: 25 MG, UNK
  5. CELEBREX [Concomitant]
     Active Substance: CELECOXIB
     Indication: OSTEOARTHRITIS
     Dosage: 700 UNK, QD
     Dates: start: 201309
  6. HCTZ [Concomitant]
     Active Substance: HYDROCHLOROTHIAZIDE
     Indication: HYPERTENSION
     Dosage: 125 UNK, QD
     Dates: start: 2000
  7. HYDROCHLOROTH [Concomitant]
     Active Substance: HYDROCHLOROTHIAZIDE
     Dosage: 12.5 MG, UNK

REACTIONS (7)
  - Asthenia [Unknown]
  - Hypotension [Unknown]
  - Swelling [Unknown]
  - Pruritus [Unknown]
  - Myalgia [Unknown]
  - Flushing [Unknown]
  - Arthralgia [Unknown]

NARRATIVE: CASE EVENT DATE: 20160322
